FAERS Safety Report 7969143-X (Version None)
Quarter: 2011Q4

REPORT INFORMATION
  Report Type: 
  Country: None (occurrence: None)
  Receive Date: 20111209
  Receipt Date: 20111124
  Transmission Date: 20120403
  Serious: Yes (Life-Threatening, Hospitalization)
  Sender: FDA-Public Use
  Company Number: ES-ROCHE-1017538

PATIENT
  Sex: Female

DRUGS (3)
  1. TARCEVA [Suspect]
     Indication: PANCREATIC CARCINOMA
     Dosage: LAST DOSE PRIOR TO SAE: 13/NOV/2011
     Route: 048
     Dates: start: 20110926
  2. XELODA [Suspect]
     Indication: PANCREATIC CARCINOMA
     Dosage: DATE OF LAST DOSE PRIOR TO SAE: 13/NOV/2011
     Route: 048
     Dates: start: 20110926
  3. GEMCITABINE HYDROCHLORIDE [Suspect]
     Indication: PANCREATIC CARCINOMA
     Dosage: LAST DOSE PRIOR TO SAE: 7/NOV/2011
     Route: 042
     Dates: start: 20110926

REACTIONS (1)
  - PERIPHERAL ISCHAEMIA [None]
